FAERS Safety Report 5726024-X (Version None)
Quarter: 2008Q2

REPORT INFORMATION
  Report Type: 
  Country: None (occurrence: None)
  Receive Date: 20080502
  Receipt Date: 20080421
  Transmission Date: 20081010
  Serious: Yes (Other)
  Sender: FDA-Public Use
  Company Number: US-WYE-H03677908

PATIENT
  Sex: Female
  Weight: 67.1 kg

DRUGS (10)
  1. EFFEXOR XR [Suspect]
     Dosage: UNKNOWN
  2. TRAMADOL HCL [Concomitant]
     Dosage: UNKNOWN
  3. AVANDIA [Concomitant]
     Dosage: 4 MG
  4. CRESTOR [Concomitant]
     Dosage: UNKNOWN
  5. ATENOLOL [Concomitant]
     Dosage: UNKNOWN
  6. ZANTAC [Concomitant]
     Dosage: UNKNOWN
  7. BACTRIM [Concomitant]
     Dosage: UNKNOWN
  8. PILOCARPINE [Concomitant]
     Dosage: UNKNOWN
  9. LYRICA [Interacting]
     Indication: FIBROMYALGIA
     Dates: start: 20080320, end: 20080328
  10. LORAZEPAM [Concomitant]
     Dosage: UNKNOWN

REACTIONS (19)
  - ABNORMAL DREAMS [None]
  - BALANCE DISORDER [None]
  - CONTUSION [None]
  - DEPRESSION [None]
  - DIPLOPIA [None]
  - DRUG INTERACTION [None]
  - DYSPNOEA [None]
  - FALL [None]
  - FEELING ABNORMAL [None]
  - GAIT DISTURBANCE [None]
  - HEADACHE [None]
  - HOT FLUSH [None]
  - MYALGIA [None]
  - PHOTOPSIA [None]
  - PRURITUS [None]
  - RASH [None]
  - STOMACH DISCOMFORT [None]
  - SWELLING FACE [None]
  - TREMOR [None]
